FAERS Safety Report 5398818-4 (Version None)
Quarter: 2007Q3

REPORT INFORMATION
  Report Type: 
  Country: None (occurrence: None)
  Receive Date: 20070727
  Receipt Date: 20070716
  Transmission Date: 20080115
  Serious: Yes (Life-Threatening, Hospitalization, Other)
  Sender: FDA-Public Use
  Company Number: ES-JNJFOC-20070305366

PATIENT
  Age: 30 Year
  Sex: Male

DRUGS (2)
  1. REMICADE [Suspect]
     Indication: ANKYLOSING SPONDYLITIS
     Route: 042
  2. METHOTREXATE [Concomitant]
     Indication: PERIPHERAL VASCULAR DISORDER

REACTIONS (4)
  - ACUTE RESPIRATORY DISTRESS SYNDROME [None]
  - EMPYEMA [None]
  - PNEUMONIA [None]
  - VARICELLA [None]
